FAERS Safety Report 24269812 (Version 1)
Quarter: 2024Q3

REPORT INFORMATION
  Report Type: Spontaneous
  Country: US (occurrence: US)
  Receive Date: 20240830
  Receipt Date: 20240830
  Transmission Date: 20241016
  Serious: No
  Sender: ABBVIE
  Company Number: US-ABBVIE-5892008

PATIENT
  Sex: Female

DRUGS (1)
  1. HUMIRA [Suspect]
     Active Substance: ADALIMUMAB
     Indication: Product used for unknown indication
     Dosage: DURATION TEXT : MANY YEARS
     Route: 058

REACTIONS (2)
  - Eczema [Recovered/Resolved]
  - Rash papular [Not Recovered/Not Resolved]
